FAERS Safety Report 10967214 (Version 1)
Quarter: 2015Q1

REPORT INFORMATION
  Report Type: Spontaneous
  Country: US (occurrence: US)
  Receive Date: 20150330
  Receipt Date: 20150330
  Transmission Date: 20150721
  Serious: No
  Sender: FDA-Public Use
  Company Number: US-009507513-1503USA006088

PATIENT
  Age: 86 Year
  Sex: Male

DRUGS (5)
  1. ASPIRIN. [Concomitant]
     Active Substance: ASPIRIN
  2. BELSOMRA [Suspect]
     Active Substance: SUVOREXANT
     Indication: INSOMNIA
     Dosage: 10 MG, QD
     Route: 048
     Dates: start: 20150309
  3. PRINIVIL [Concomitant]
     Active Substance: LISINOPRIL
  4. CELEBREX [Concomitant]
     Active Substance: CELECOXIB
  5. ANDROGEL [Concomitant]
     Active Substance: TESTOSTERONE

REACTIONS (3)
  - Adverse event [Unknown]
  - Middle insomnia [Unknown]
  - Insomnia [Unknown]

NARRATIVE: CASE EVENT DATE: 20150309
